FAERS Safety Report 21219884 (Version 1)
Quarter: 2022Q3

REPORT INFORMATION
  Report Type: Spontaneous
  Country: US (occurrence: US)
  Receive Date: 20220817
  Receipt Date: 20220817
  Transmission Date: 20221027
  Serious: No
  Sender: FDA-Public Use
  Company Number: US-ORGANON-O2208USA000736

PATIENT
  Age: 27 Year
  Sex: Female
  Weight: 87.528 kg

DRUGS (2)
  1. NEXPLANON [Suspect]
     Active Substance: ETONOGESTREL
     Indication: Contraception
     Dosage: 1 DOSAGE FORM OF 68MG ONCE IN LEFT ARM
     Route: 059
     Dates: start: 20220603, end: 20220630
  2. XANAX [Concomitant]
     Active Substance: ALPRAZOLAM
     Dosage: AS NEEDED (PRN)

REACTIONS (4)
  - Implant site infection [Recovered/Resolved]
  - Implant site erythema [Recovered/Resolved]
  - Implant site swelling [Recovered/Resolved]
  - Implant site haematoma [Recovered/Resolved]

NARRATIVE: CASE EVENT DATE: 20220601
